FAERS Safety Report 15014427 (Version 2)
Quarter: 2018Q2

REPORT INFORMATION
  Report Type: Spontaneous
  Country: IL (occurrence: IL)
  Receive Date: 20180615
  Receipt Date: 20180628
  Transmission Date: 20180711
  Serious: Yes (Life-Threatening, Hospitalization, Disabling, Other)
  Sender: FDA-Public Use
  Company Number: IL-009507513-1806ISR004242

PATIENT
  Age: 74 Year
  Sex: Male
  Weight: 88 kg

DRUGS (16)
  1. CYCLOSPORINE. [Interacting]
     Active Substance: CYCLOSPORINE
     Indication: FOCAL SEGMENTAL GLOMERULOSCLEROSIS
     Dosage: 100+50 MG
     Route: 048
     Dates: start: 20160821, end: 20161114
  2. FLUCONAZOLE. [Interacting]
     Active Substance: FLUCONAZOLE
     Indication: CRYPTOCOCCAL FUNGAEMIA
     Dosage: 400 MG, DAY
     Route: 042
  3. FLUCONAZOLE. [Interacting]
     Active Substance: FLUCONAZOLE
     Dosage: 400 MG, DAY
  4. ALLORIL [Concomitant]
     Indication: GOUT
     Dosage: 100 MG, UNK
     Route: 048
     Dates: end: 20161027
  5. AMPHOTERICIN B. [Concomitant]
     Active Substance: AMPHOTERICIN B
     Indication: CRYPTOCOCCAL CUTANEOUS INFECTION
  6. WARFARIN [Concomitant]
     Active Substance: WARFARIN
     Indication: CONGESTIVE CARDIOMYOPATHY
  7. COLCHICINE. [Concomitant]
     Active Substance: COLCHICINE
     Indication: GOUT
     Dosage: 500 MICROGRAM, UNK
     Route: 048
     Dates: end: 20161027
  8. SIMOVIL [Interacting]
     Active Substance: SIMVASTATIN
     Indication: LIPID METABOLISM DISORDER
     Dosage: 20 MG, UNK
     Route: 048
     Dates: end: 20161027
  9. FLUCONAZOLE. [Interacting]
     Active Substance: FLUCONAZOLE
     Indication: CRYPTOCOCCAL CUTANEOUS INFECTION
     Dosage: 400 MG, DAY
     Route: 048
  10. PREDNISONE. [Concomitant]
     Active Substance: PREDNISONE
     Indication: FOCAL SEGMENTAL GLOMERULOSCLEROSIS
     Dosage: THIRD COURSE OF PREDNISONE TAPERING (35 MG/DAY)
  11. PREDNISONE. [Concomitant]
     Active Substance: PREDNISONE
     Indication: NEPHROTIC SYNDROME
     Dosage: 30 MG, DAY
  12. FLUCONAZOLE. [Interacting]
     Active Substance: FLUCONAZOLE
     Dosage: 200 MG, DAY
  13. PREDNISONE. [Concomitant]
     Active Substance: PREDNISONE
     Dosage: 2 MG, DAY
  14. AMPHOTERICIN B. [Concomitant]
     Active Substance: AMPHOTERICIN B
     Indication: CRYPTOCOCCAL FUNGAEMIA
     Dosage: 3 MG/KG
  15. CYCLOSPORINE. [Interacting]
     Active Substance: CYCLOSPORINE
     Indication: NEPHROTIC SYNDROME
  16. THERAPY UNSPECIFIED [Suspect]
     Active Substance: UNSPECIFIED INGREDIENT

REACTIONS (7)
  - Toxicity to various agents [Unknown]
  - Rhabdomyolysis [Recovered/Resolved]
  - Blood bilirubin increased [Recovered/Resolved]
  - Drug interaction [Unknown]
  - Acute kidney injury [Recovered/Resolved]
  - Dysphonia [Unknown]
  - Hepatic enzyme increased [Unknown]

NARRATIVE: CASE EVENT DATE: 20161024
